FAERS Safety Report 5836514-7 (Version None)
Quarter: 2008Q3

REPORT INFORMATION
  Report Type: 
  Country: None (occurrence: None)
  Receive Date: 20080806
  Receipt Date: 20080806
  Transmission Date: 20090109
  Serious: Yes (Hospitalization)
  Sender: FDA-Public Use
  Company Number: None

PATIENT
  Sex: Male
  Weight: 66.82 kg

DRUGS (3)
  1. CISPLATIN [Suspect]
     Dosage: 178 MG
     Dates: end: 20080722
  2. ATIVAN [Concomitant]
  3. TENORMIN [Concomitant]

REACTIONS (3)
  - DYSPNOEA [None]
  - REFUSAL OF TREATMENT BY PATIENT [None]
  - RESPIRATORY DISORDER [None]
